FAERS Safety Report 9408957 (Version 1)
Quarter: 2013Q3

REPORT INFORMATION
  Report Type: Spontaneous
  Country: SG (occurrence: SG)
  Receive Date: 20130719
  Receipt Date: 20130719
  Transmission Date: 20140515
  Serious: Yes (Death, Disabling)
  Sender: FDA-Public Use
  Company Number: SG-TEVA-419680ISR

PATIENT
  Age: 42 Year
  Sex: Female

DRUGS (6)
  1. METHOTREXATE [Suspect]
     Indication: B PRECURSOR TYPE ACUTE LEUKAEMIA
     Dosage: 12MG
     Route: 037
  2. CYCLOPHOSPHAMIDE [Concomitant]
     Indication: B PRECURSOR TYPE ACUTE LEUKAEMIA
     Route: 065
  3. VINCRISTINE [Concomitant]
     Indication: B PRECURSOR TYPE ACUTE LEUKAEMIA
     Route: 065
  4. ADRIAMYCIN [Concomitant]
     Indication: B PRECURSOR TYPE ACUTE LEUKAEMIA
     Route: 065
  5. DEXAMETHASONE [Concomitant]
     Indication: B PRECURSOR TYPE ACUTE LEUKAEMIA
     Route: 065
  6. CYTARABINE [Concomitant]
     Indication: B PRECURSOR TYPE ACUTE LEUKAEMIA
     Route: 065

REACTIONS (2)
  - Myelopathy [Not Recovered/Not Resolved]
  - Haemorrhage intracranial [Fatal]
